FAERS Safety Report 15116696 (Version 8)
Quarter: 2018Q3

REPORT INFORMATION
  Report Type: Report from Study
  Country: DE (occurrence: DE)
  Receive Date: 20180706
  Receipt Date: 20180817
  Transmission Date: 20181010
  Serious: Yes (Hospitalization)
  Sender: FDA-Public Use
  Company Number: PHHO2018DE007912

PATIENT
  Age: 69 Year
  Sex: Male
  Weight: 106.9 kg

DRUGS (16)
  1. TORASEMIDE [Concomitant]
     Active Substance: TORSEMIDE
     Indication: HYPERTENSION
     Dosage: 5 MG, QD
     Route: 048
     Dates: start: 2008
  2. BLINDED LLG783 [Suspect]
     Active Substance: INVESTIGATIONAL PRODUCT
     Indication: PERIPHERAL ARTERIAL OCCLUSIVE DISEASE
     Dosage: CODE NOT BROKEN
     Route: 042
     Dates: start: 20180309
  3. SIMVASTATIN. [Concomitant]
     Active Substance: SIMVASTATIN
     Indication: HYPERLIPIDAEMIA
     Dosage: 40 MG, QD
     Route: 048
     Dates: start: 2007
  4. AMLODIPIN [Concomitant]
     Active Substance: AMLODIPINE BESYLATE
     Indication: HYPERTENSION
     Dosage: 10 MG, QD
     Route: 048
     Dates: start: 2008
  5. BLINDED LLG783 [Suspect]
     Active Substance: INVESTIGATIONAL PRODUCT
     Indication: PERIPHERAL ARTERIAL OCCLUSIVE DISEASE
     Dosage: CODE NOT BROKEN
     Route: 042
     Dates: start: 20180309
  6. BLINDED NO TREATMENT RECEIVED [Suspect]
     Active Substance: INVESTIGATIONAL PRODUCT
     Indication: PERIPHERAL ARTERIAL OCCLUSIVE DISEASE
     Dosage: CODE NOT BROKEN
     Route: 042
     Dates: start: 20180309
  7. BLINDED PLACEBO [Suspect]
     Active Substance: INVESTIGATIONAL PRODUCT
     Indication: PERIPHERAL ARTERIAL OCCLUSIVE DISEASE
     Dosage: CODE NOT BROKEN
     Route: 042
     Dates: start: 20180309
  8. IS?5?MONO [Concomitant]
     Indication: CORONARY ARTERY DISEASE
     Dosage: 40 MG, QD
     Route: 048
     Dates: start: 2007
  9. RAMIPRIL. [Concomitant]
     Active Substance: RAMIPRIL
     Indication: HYPERTENSION
     Dosage: 5 MG, BID
     Route: 048
     Dates: start: 2008
  10. MOXONIDINE [Concomitant]
     Active Substance: MOXONIDINE
     Indication: HYPERTENSION
     Dosage: 0.3 MG, QD
     Route: 048
     Dates: start: 2008
  11. BISOPROLOL [Concomitant]
     Active Substance: BISOPROLOL
     Indication: HYPERTENSION
     Dosage: 5 MG, TID
     Route: 048
     Dates: start: 2007
  12. ACETYLSALICYLIC ACID [Suspect]
     Active Substance: ASPIRIN
     Indication: CORONARY ARTERY DISEASE
     Dosage: 100 MG, QD
     Route: 048
     Dates: start: 1985
  13. PHENPRO [Suspect]
     Active Substance: PHENPROCOUMON
     Indication: ATRIAL FIBRILLATION
     Dosage: PRN
     Route: 048
     Dates: start: 2013
  14. ALLOPURINOL. [Concomitant]
     Active Substance: ALLOPURINOL
     Indication: HYPERURICAEMIA
     Dosage: 300 MG, QD
     Route: 048
     Dates: start: 2007
  15. METFORMIN [Concomitant]
     Active Substance: METFORMIN HYDROCHLORIDE
     Indication: TYPE 2 DIABETES MELLITUS
     Dosage: 1000 MG, BID
     Route: 048
     Dates: start: 1990
  16. INSULIN [Concomitant]
     Active Substance: INSULIN NOS
     Indication: TYPE 2 DIABETES MELLITUS
     Dosage: PRN
     Route: 058
     Dates: start: 2000

REACTIONS (1)
  - Gastritis haemorrhagic [Recovered/Resolved]

NARRATIVE: CASE EVENT DATE: 20180612
